FAERS Safety Report 10254381 (Version 1)
Quarter: 2014Q2

REPORT INFORMATION
  Report Type: Report from Study
  Country: US (occurrence: US)
  Receive Date: 20140624
  Receipt Date: 20140624
  Transmission Date: 20141212
  Serious: Yes (Hospitalization, Other)
  Sender: FDA-Public Use
  Company Number: US-ROCHE-1421688

PATIENT
  Sex: Male

DRUGS (3)
  1. NUTROPIN AQ [Suspect]
     Indication: GROWTH HORMONE DEFICIENCY
     Route: 058
  2. HYDROCORTISONE [Concomitant]
     Route: 048
     Dates: start: 20140611
  3. LEVOTHYROXINE [Concomitant]
     Route: 048
     Dates: start: 20130701

REACTIONS (4)
  - Pneumonia [Unknown]
  - Blood glucose decreased [Unknown]
  - Gastrointestinal disorder [Unknown]
  - Pyrexia [Unknown]
